FAERS Safety Report 6014427-8 (Version None)
Quarter: 2008Q4

REPORT INFORMATION
  Report Type: 
  Country: None (occurrence: None)
  Receive Date: 20081219
  Receipt Date: 20080623
  Transmission Date: 20090506
  Serious: No
  Sender: FDA-Public Use
  Company Number: A0732905A

PATIENT
  Age: 67 Year
  Sex: Male

DRUGS (4)
  1. AVODART [Suspect]
     Indication: BENIGN PROSTATIC HYPERPLASIA
     Dosage: .5MG PER DAY
     Route: 048
     Dates: start: 20080530
  2. PREVACID [Concomitant]
  3. LEXAPRO [Concomitant]
     Dates: start: 20080512
  4. LEVAQUIN [Concomitant]
     Indication: BIOPSY PROSTATE
     Dates: start: 20080609, end: 20080611

REACTIONS (1)
  - LIP BLISTER [None]
